FAERS Safety Report 4993861-9 (Version None)
Quarter: 2006Q2

REPORT INFORMATION
  Report Type: 
  Country: None (occurrence: None)
  Receive Date: 20060505
  Receipt Date: 20051020
  Transmission Date: 20061013
  Serious: Yes (Hospitalization, Disabling)
  Sender: FDA-Public Use
  Company Number: US-MERCK-0510USA08556

PATIENT
  Age: 58 Year
  Sex: Female
  Weight: 91 kg

DRUGS (4)
  1. VIOXX [Suspect]
     Indication: ARTHRITIS
     Route: 048
     Dates: start: 19991012, end: 20001102
  2. ZESTRIL [Concomitant]
     Indication: HYPERTENSION
     Route: 065
     Dates: start: 19990121
  3. LANOXIN [Concomitant]
     Indication: CARDIAC DISORDER
     Route: 065
     Dates: start: 20010301
  4. GLUCOPHAGE [Concomitant]
     Indication: DIABETES MELLITUS
     Route: 065

REACTIONS (20)
  - ANGINA UNSTABLE [None]
  - BUNDLE BRANCH BLOCK RIGHT [None]
  - CARDIOMYOPATHY [None]
  - CARPAL TUNNEL SYNDROME [None]
  - CHEST PAIN [None]
  - COLONIC POLYP [None]
  - CORONARY ARTERY DISEASE [None]
  - CORONARY ARTERY RESTENOSIS [None]
  - CORONARY ARTERY STENOSIS [None]
  - DILATATION ATRIAL [None]
  - DILATATION VENTRICULAR [None]
  - EJECTION FRACTION DECREASED [None]
  - MITRAL VALVE INCOMPETENCE [None]
  - MYOCARDIAL INFARCTION [None]
  - NAUSEA [None]
  - PELVIC PAIN [None]
  - PERICARDIAL EFFUSION [None]
  - PULMONARY HYPERTENSION [None]
  - TRICUSPID VALVE INCOMPETENCE [None]
  - VOMITING [None]
